FAERS Safety Report 13360170 (Version 2)
Quarter: 2017Q1

REPORT INFORMATION
  Report Type: Spontaneous
  Country: GB (occurrence: GB)
  Receive Date: 20170322
  Receipt Date: 20170331
  Transmission Date: 20170429
  Serious: Yes (Hospitalization, Other)
  Sender: FDA-Public Use
  Company Number: GB-MYLANLABS-2017M1017366

PATIENT

DRUGS (4)
  1. ARIPIPRAZOLE. [Concomitant]
     Active Substance: ARIPIPRAZOLE
     Indication: THERAPEUTIC RESPONSE INCREASED
     Dosage: 15 MG, PM
     Route: 048
     Dates: start: 20160426
  2. DIAZEPAM. [Concomitant]
     Active Substance: DIAZEPAM
     Indication: AGITATION
     Dosage: 10 MG, PM
     Route: 048
     Dates: start: 20160307
  3. CLOZARIL [Suspect]
     Active Substance: CLOZAPINE
     Dosage: UNK
     Route: 048
     Dates: start: 2016
  4. CLOZARIL [Suspect]
     Active Substance: CLOZAPINE
     Indication: SCHIZOPHRENIA
     Dosage: 400 MG, PM
     Route: 048
     Dates: start: 20121022

REACTIONS (4)
  - Electrocardiogram QT prolonged [Recovered/Resolved]
  - Memory impairment [Recovered/Resolved]
  - Heart rate increased [Unknown]
  - Mental impairment [Unknown]

NARRATIVE: CASE EVENT DATE: 2016
